FAERS Safety Report 6018593-X (Version None)
Quarter: 2008Q4

REPORT INFORMATION
  Report Type: 
  Country: None (occurrence: None)
  Receive Date: 20081223
  Receipt Date: 20081218
  Transmission Date: 20090506
  Serious: Yes (Hospitalization)
  Sender: FDA-Public Use
  Company Number: DK-B.I. PHARMACEUTICALS,INC./RIDGEFIELD-2008-SW-00343DB

PATIENT
  Age: 66 Year
  Sex: Female

DRUGS (3)
  1. MICARDISPLUS TAB 80 MG + 12.5 MG [Suspect]
     Indication: HYPERTENSION
     Dosage: STRENGTH: 80 MG TELMISARTAN + 12,5 HYDROCHLORTIAZIDE. DAILY DOSE: 80 MG + 12,5 MG
     Dates: start: 20060301
  2. AMLODIPINE [Concomitant]
     Indication: HYPERTENSION
     Dosage: 5MG
     Dates: start: 20060101
  3. HJERTEMAGNYL [Concomitant]
     Dosage: 75MG
     Dates: start: 20060101

REACTIONS (3)
  - ANGIOEDEMA [None]
  - LIP SWELLING [None]
  - SWOLLEN TONGUE [None]
